FAERS Safety Report 13638465 (Version 2)
Quarter: 2017Q3

REPORT INFORMATION
  Report Type: Report from Study
  Country: US (occurrence: US)
  Receive Date: 20170609
  Receipt Date: 20170818
  Transmission Date: 20171127
  Serious: Yes (Other)
  Sender: FDA-Public Use
  Company Number: US-ASTRAZENECA-2016SF28520

PATIENT
  Age: 53 Year
  Sex: Male
  Weight: 88.5 kg

DRUGS (6)
  1. NEXIUM [Suspect]
     Active Substance: ESOMEPRAZOLE MAGNESIUM
     Indication: GASTROOESOPHAGEAL REFLUX DISEASE
     Route: 048
     Dates: start: 201605
  2. CARAFATE [Concomitant]
     Active Substance: SUCRALFATE
     Indication: ULCER
     Route: 048
     Dates: start: 2000, end: 2000
  3. METFORMIN [Concomitant]
     Active Substance: METFORMIN HYDROCHLORIDE
     Indication: DIABETES MELLITUS
     Route: 048
  4. NEXIUM [Suspect]
     Active Substance: ESOMEPRAZOLE MAGNESIUM
     Indication: GASTROOESOPHAGEAL REFLUX DISEASE
     Route: 048
     Dates: start: 2000, end: 201604
  5. NEXIUM [Suspect]
     Active Substance: ESOMEPRAZOLE MAGNESIUM
     Indication: GASTROOESOPHAGEAL REFLUX DISEASE
     Route: 048
     Dates: start: 201705
  6. PLAVIX [Concomitant]
     Active Substance: CLOPIDOGREL BISULFATE
     Indication: ANTICOAGULANT THERAPY
     Route: 048
     Dates: start: 2000

REACTIONS (17)
  - Chest pain [Unknown]
  - Fall [Unknown]
  - Dyspepsia [Unknown]
  - Feeling abnormal [Unknown]
  - Ulcer [Unknown]
  - Intentional product misuse [Unknown]
  - Body height decreased [Unknown]
  - Drug dose omission [Recovered/Resolved]
  - Diabetes mellitus [Unknown]
  - Feeding disorder [Unknown]
  - Heart valve incompetence [Unknown]
  - Diarrhoea [Unknown]
  - Neoplasm malignant [Unknown]
  - Dyspnoea [Unknown]
  - Weight decreased [Unknown]
  - Memory impairment [Unknown]
  - Myocardial infarction [Unknown]

NARRATIVE: CASE EVENT DATE: 2000
